FAERS Safety Report 23189628 (Version 3)
Quarter: 2023Q4

REPORT INFORMATION
  Report Type: Spontaneous
  Country: US (occurrence: None)
  Receive Date: 20231116
  Receipt Date: 20231129
  Transmission Date: 20240110
  Serious: No
  Sender: FDA-Public Use
  Company Number: 2023A255247

PATIENT
  Sex: Female

DRUGS (7)
  1. TEZSPIRE [Suspect]
     Active Substance: TEZEPELUMAB-EKKO
     Indication: Ankylosing spondylitis
  2. ENBREL [Suspect]
     Active Substance: ETANERCEPT
     Indication: Ankylosing spondylitis
     Dates: start: 20231013
  3. AMINOPHENAZONE [Concomitant]
     Active Substance: AMINOPHENAZONE
  4. ATROPA BELLA-DONNA EXTRACT [Concomitant]
  5. CAFFEINE [Concomitant]
     Active Substance: CAFFEINE
  6. EPHEDRINE HYDROCHLORIDE [Concomitant]
     Active Substance: EPHEDRINE HYDROCHLORIDE
  7. THEOPHYLLINE [Concomitant]
     Active Substance: THEOPHYLLINE

REACTIONS (4)
  - Malaise [Unknown]
  - Nasal congestion [Unknown]
  - Fatigue [Unknown]
  - SARS-CoV-2 test positive [Unknown]
